FAERS Safety Report 8375489-6 (Version None)
Quarter: 2012Q2

REPORT INFORMATION
  Report Type: 
  Country: None (occurrence: None)
  Receive Date: 20120518
  Receipt Date: 20120518
  Transmission Date: 20120825
  Serious: Yes (Other)
  Sender: FDA-Public Use
  Company Number: None

PATIENT
  Sex: Female
  Weight: 93.8946 kg

DRUGS (1)
  1. CARBAMAZEPINE [Suspect]

REACTIONS (3)
  - BALANCE DISORDER [None]
  - PRODUCT SUBSTITUTION ISSUE [None]
  - PRODUCT QUALITY ISSUE [None]
